FAERS Safety Report 11840408 (Version 2)
Quarter: 2016Q1

REPORT INFORMATION
  Report Type: Spontaneous
  Country: US (occurrence: US)
  Receive Date: 20151216
  Receipt Date: 20160311
  Transmission Date: 20160525
  Serious: No
  Sender: FDA-Public Use
  Company Number: US-GALDERMA-US15008305

PATIENT
  Age: 71 Year
  Sex: Female

DRUGS (6)
  1. MIRVASO [Suspect]
     Active Substance: BRIMONIDINE TARTRATE
     Indication: ROSACEA
     Dosage: 0.33%
     Route: 061
     Dates: start: 20151109, end: 20151111
  2. RETIN-A MICRO [Suspect]
     Active Substance: TRETINOIN
     Indication: DERMAL CYST
     Route: 061
     Dates: start: 2015
  3. MIRVASO [Suspect]
     Active Substance: BRIMONIDINE TARTRATE
     Indication: ROSACEA
     Dosage: 0.33%
     Route: 061
     Dates: start: 2012, end: 201509
  4. MIRVASO [Suspect]
     Active Substance: BRIMONIDINE TARTRATE
     Route: 061
     Dates: start: 20151112
  5. CLINIQUE ANTI-ROSACEA MAKEUP LINE [Concomitant]
     Indication: THERAPEUTIC SKIN CARE TOPICAL
     Route: 061
  6. CETAPHIL MOISTURIZING CREAM [Concomitant]
     Active Substance: COSMETICS
     Indication: DRY SKIN PROPHYLAXIS
     Route: 061

REACTIONS (8)
  - Pruritus [Not Recovered/Not Resolved]
  - Ocular hyperaemia [Not Recovered/Not Resolved]
  - Chemical burn of skin [Recovered/Resolved]
  - Dermal cyst [Unknown]
  - Eyelid oedema [Not Recovered/Not Resolved]
  - Eye irritation [Not Recovered/Not Resolved]
  - Erythema [Not Recovered/Not Resolved]
  - Inappropriate schedule of drug administration [Recovered/Resolved]

NARRATIVE: CASE EVENT DATE: 2015
